FAERS Safety Report 4832561-2 (Version None)
Quarter: 2005Q4

REPORT INFORMATION
  Report Type: 
  Country: None (occurrence: None)
  Receive Date: 20051117
  Receipt Date: 20051104
  Transmission Date: 20060501
  Serious: Yes (Other)
  Sender: FDA-Public Use
  Company Number: 2005151576

PATIENT
  Age: 17 Year
  Sex: Male
  Weight: 72.5755 kg

DRUGS (1)
  1. DRAMAMINE [Suspect]
     Dosage: 12 PILLS ONCE, ORAL
     Route: 048
     Dates: start: 20051104, end: 20051104

REACTIONS (5)
  - DIZZINESS [None]
  - FEELING ABNORMAL [None]
  - HALLUCINATION, VISUAL [None]
  - OVERDOSE [None]
  - SOMNOLENCE [None]
